FAERS Safety Report 13436284 (Version 1)
Quarter: 2017Q2

REPORT INFORMATION
  Report Type: Spontaneous
  Country: US (occurrence: US)
  Receive Date: 20170412
  Receipt Date: 20170412
  Transmission Date: 20170830
  Serious: No
  Sender: FDA-Public Use
  Company Number: US-SA-2016SA163084

PATIENT
  Sex: Male

DRUGS (2)
  1. ALLEGRA ALLERGY [Suspect]
     Active Substance: FEXOFENADINE HYDROCHLORIDE
     Indication: RHINORRHOEA
     Dosage: FREQUENCY_1-2 TIMESDAILY
     Route: 048
     Dates: start: 20160831
  2. ALLEGRA ALLERGY [Suspect]
     Active Substance: FEXOFENADINE HYDROCHLORIDE
     Indication: LACRIMATION INCREASED
     Dosage: FREQUENCY_1-2 TIMESDAILY
     Route: 048
     Dates: start: 20160831

REACTIONS (2)
  - Drug ineffective [Unknown]
  - Product use issue [Unknown]
